FAERS Safety Report 20280227 (Version 1)
Quarter: 2021Q4

REPORT INFORMATION
  Report Type: Spontaneous
  Country: US (occurrence: None)
  Receive Date: 20211231
  Receipt Date: 20211231
  Transmission Date: 20220303
  Serious: Yes (Other)
  Sender: FDA-Public Use
  Company Number: None

PATIENT
  Age: 29 Year
  Sex: Female
  Weight: 49.9 kg

DRUGS (4)
  1. KYLEENA [Suspect]
     Active Substance: LEVONORGESTREL
     Indication: Product used for unknown indication
  2. XELJANZ [Concomitant]
     Active Substance: TOFACITINIB CITRATE
  3. METHOTREXATE [Concomitant]
     Active Substance: METHOTREXATE
  4. Flintstones multi vitamin [Concomitant]

REACTIONS (4)
  - Ovarian cyst [None]
  - Uterine leiomyoma [None]
  - Pain [None]
  - Complication associated with device [None]

NARRATIVE: CASE EVENT DATE: 20211126
